FAERS Safety Report 5716707-X (Version None)
Quarter: 2008Q2

REPORT INFORMATION
  Report Type: 
  Country: None (occurrence: None)
  Receive Date: 20080424
  Receipt Date: 20070322
  Transmission Date: 20081010
  Serious: No
  Sender: FDA-Public Use
  Company Number: US-BAYER-200710954BWH

PATIENT
  Age: 77 Year
  Sex: Male

DRUGS (8)
  1. LEVITRA [Suspect]
     Indication: ERECTILE DYSFUNCTION
     Dosage: TOTAL DAILY DOSE: 20 MG  UNIT DOSE: 20 MG
     Route: 048
     Dates: start: 20070313
  2. LEVITRA [Suspect]
     Dosage: TOTAL DAILY DOSE: 20 MG  UNIT DOSE: 20 MG
     Route: 048
     Dates: start: 20070101
  3. LEVITRA [Suspect]
     Dosage: TOTAL DAILY DOSE: 20 MG  UNIT DOSE: 20 MG
     Route: 048
     Dates: start: 20070101
  4. LEVITRA [Suspect]
     Dosage: TOTAL DAILY DOSE: 20 MG  UNIT DOSE: 20 MG
     Route: 048
     Dates: start: 20070101
  5. LEVITRA [Suspect]
     Dosage: TOTAL DAILY DOSE: 20 MG  UNIT DOSE: 20 MG
     Route: 048
     Dates: start: 20070101
  6. GLUCOSAMINE [Concomitant]
  7. CHONDROITIN [Concomitant]
  8. MSM (METHYLSULFONYLMETHANE) [Concomitant]

REACTIONS (3)
  - ERECTILE DYSFUNCTION [None]
  - HEADACHE [None]
  - THIRST [None]
